FAERS Safety Report 13020749 (Version 1)
Quarter: 2016Q4

REPORT INFORMATION
  Report Type: Spontaneous
  Country: US (occurrence: US)
  Receive Date: 20161212
  Receipt Date: 20161212
  Transmission Date: 20170207
  Serious: No
  Sender: FDA-Public Use
  Company Number: US-ASTRAZENECA-2016SF19921

PATIENT
  Age: 77 Year
  Sex: Female
  Weight: 72.1 kg

DRUGS (4)
  1. LISINOPRIL. [Suspect]
     Active Substance: LISINOPRIL
     Route: 048
  2. SPIRIVA [Concomitant]
     Active Substance: TIOTROPIUM BROMIDE MONOHYDRATE
     Route: 055
     Dates: start: 2007
  3. LOSARTAN. [Concomitant]
     Active Substance: LOSARTAN
     Route: 048
  4. SYMBICORT [Suspect]
     Active Substance: BUDESONIDE\FORMOTEROL FUMARATE DIHYDRATE
     Indication: CHRONIC OBSTRUCTIVE PULMONARY DISEASE
     Dosage: 2 PUFFS TWICE A DAY
     Route: 055
     Dates: start: 2007

REACTIONS (5)
  - Bronchitis [Unknown]
  - Chronic obstructive pulmonary disease [Unknown]
  - Pneumonia [Unknown]
  - Hypotension [Unknown]
  - Hand deformity [Unknown]

NARRATIVE: CASE EVENT DATE: 2007
